FAERS Safety Report 20639317 (Version 3)
Quarter: 2022Q2

REPORT INFORMATION
  Report Type: Spontaneous
  Country: DE (occurrence: DE)
  Receive Date: 20220326
  Receipt Date: 20220419
  Transmission Date: 20220721
  Serious: Yes (Other)
  Sender: FDA-Public Use
  Company Number: DE-35507-2022-03819

PATIENT
  Age: 55 Year
  Sex: Male

DRUGS (14)
  1. LEVETIRACETAM [Suspect]
     Active Substance: LEVETIRACETAM
     Indication: Epilepsy
     Dosage: 1500 MILLIGRAM, BID
     Route: 048
     Dates: end: 202203
  2. LEVETIRACETAM [Suspect]
     Active Substance: LEVETIRACETAM
     Dosage: 1500 MILLIGRAM, BID, 4-6 TABLETS OF NEW PACKAGE BEFORE THE SEIZURE
     Route: 048
     Dates: start: 202203, end: 202203
  3. LEVETIRACETAM [Suspect]
     Active Substance: LEVETIRACETAM
     Dosage: 500 MG (1 - 0 - 1)
     Route: 048
     Dates: start: 20220228, end: 20220310
  4. LEVETIRACETAM [Suspect]
     Active Substance: LEVETIRACETAM
     Dosage: 2000 MILLIGRAM, BID (2 - 0 - 2 )
     Route: 048
     Dates: start: 20220310
  5. LEVETIRACETAM [Suspect]
     Active Substance: LEVETIRACETAM
     Dosage: 2000 MILLIGRAM, 4X1
     Route: 048
     Dates: start: 20210831
  6. LEVETIRACETAM [Suspect]
     Active Substance: LEVETIRACETAM
     Indication: Epilepsy
     Dosage: 1000 MG, BID
     Route: 065
     Dates: start: 20201006
  7. LEVETIRACETAM [Suspect]
     Active Substance: LEVETIRACETAM
     Dosage: 2000 MG, BID (2 - 0 - 2)
     Route: 065
     Dates: start: 20220310
  8. TIZANIDINE HYDROCHLORIDE [Concomitant]
     Active Substance: TIZANIDINE HYDROCHLORIDE
     Indication: Product used for unknown indication
     Dosage: 1.5 DOSAGE FORM (TO THE NIGHT)
     Route: 065
     Dates: start: 20200403
  9. METAMIZOLE [Concomitant]
     Active Substance: METAMIZOLE
     Indication: Product used for unknown indication
     Dosage: 2000 MG, QID
     Route: 065
     Dates: start: 20210831
  10. Ortoton forte [Concomitant]
     Indication: Product used for unknown indication
     Dosage: 750 MG
     Route: 065
     Dates: start: 20210210
  11. Ortoton forte [Concomitant]
     Dosage: 1500 MG
     Route: 065
     Dates: start: 20210210
  12. PREGABIN [Concomitant]
     Indication: Product used for unknown indication
     Dosage: 75 MG, BID (1-0-1 ) (12 HR INTERVAL)
     Route: 065
     Dates: start: 20200430
  13. MIRTAZAPINE [Concomitant]
     Active Substance: MIRTAZAPINE
     Indication: Product used for unknown indication
     Dosage: UNK
     Route: 065
     Dates: start: 2021, end: 20220310
  14. MIRTAZAPINE [Concomitant]
     Active Substance: MIRTAZAPINE
     Dosage: 0.5 UNK, QD (0-0-0.5)
     Route: 065
     Dates: start: 20200930

REACTIONS (5)
  - Seizure [Recovered/Resolved]
  - Epilepsy [Unknown]
  - Memory impairment [Not Recovered/Not Resolved]
  - Drug level decreased [Unknown]
  - Product quality issue [Unknown]

NARRATIVE: CASE EVENT DATE: 20220301
